FAERS Safety Report 5167953-8 (Version None)
Quarter: 2006Q4

REPORT INFORMATION
  Report Type: 
  Country: None (occurrence: None)
  Receive Date: 20061208
  Receipt Date: 20051111
  Transmission Date: 20070319
  Serious: No
  Sender: FDA-Public Use
  Company Number: US-GLAXOSMITHKLINE-A0581962A

PATIENT
  Age: 64 Year
  Sex: Female

DRUGS (4)
  1. AVANDAMET [Suspect]
     Dosage: 4MG TWICE PER DAY
     Route: 048
     Dates: start: 20050926, end: 20051110
  2. GLIPIZIDE [Concomitant]
  3. ASPIRIN [Concomitant]
  4. ONE A DAY VITAMIN [Concomitant]

REACTIONS (8)
  - ASTHENIA [None]
  - BODY TEMPERATURE DECREASED [None]
  - DIZZINESS [None]
  - FATIGUE [None]
  - HYPOVENTILATION [None]
  - MYALGIA [None]
  - RESPIRATORY RATE INCREASED [None]
  - SOMNOLENCE [None]
